FAERS Safety Report 23779213 (Version 1)
Quarter: 2024Q2

REPORT INFORMATION
  Report Type: Spontaneous
  Country: US (occurrence: None)
  Receive Date: 20240424
  Receipt Date: 20240424
  Transmission Date: 20240716
  Serious: No
  Sender: FDA-Public Use
  Company Number: None

PATIENT
  Age: 25 Year
  Sex: Female
  Weight: 67.5 kg

DRUGS (3)
  1. LUMATEPERONE [Suspect]
     Active Substance: LUMATEPERONE
     Indication: Bipolar disorder
     Dosage: 10.5 MG DAILY ORAL?
     Route: 048
     Dates: start: 20240227, end: 20240308
  2. naltrexone 380 mg reconstituted suspension injection [Concomitant]
  3. prazosin 2 mg capsule [Concomitant]

REACTIONS (3)
  - Bradycardia [None]
  - Orthostatic hypotension [None]
  - Syncope [None]

NARRATIVE: CASE EVENT DATE: 20240316
